FAERS Safety Report 15994937 (Version 1)
Quarter: 2019Q1

REPORT INFORMATION
  Report Type: Spontaneous
  Country: US (occurrence: US)
  Receive Date: 20190128
  Receipt Date: 20190128
  Transmission Date: 20190418
  Serious: No
  Sender: FDA-Public Use
  Company Number: None

PATIENT
  Age: 24 Year
  Sex: Female

DRUGS (1)
  1. BENLYSTA [Suspect]
     Active Substance: BELIMUMAB
     Indication: ANTIPHOSPHOLIPID ANTIBODIES
     Dates: start: 201804

REACTIONS (7)
  - Product dose omission [None]
  - Pyrexia [None]
  - Condition aggravated [None]
  - Insomnia [None]
  - Hyperhidrosis [None]
  - Renal pain [None]
  - Feeling hot [None]

NARRATIVE: CASE EVENT DATE: 20190118
